FAERS Safety Report 15694087 (Version 1)
Quarter: 2018Q4

REPORT INFORMATION
  Report Type: Spontaneous
  Country: US (occurrence: US)
  Receive Date: 20181127
  Receipt Date: 20181127
  Transmission Date: 20190205
  Serious: No
  Sender: FDA-Public Use
  Company Number: None

PATIENT
  Age: 3 Year
  Sex: Male
  Weight: 19.05 kg

DRUGS (1)
  1. CEFDINIR. [Suspect]
     Active Substance: CEFDINIR

REACTIONS (5)
  - Diarrhoea [None]
  - Abdominal pain upper [None]
  - Dysuria [None]
  - Product prescribing error [None]
  - Overdose [None]
